FAERS Safety Report 16173470 (Version 1)
Quarter: 2019Q2

REPORT INFORMATION
  Report Type: Spontaneous
  Country: US (occurrence: US)
  Receive Date: 20190408
  Receipt Date: 20190408
  Transmission Date: 20190711
  Serious: Yes (Life-Threatening, Hospitalization)
  Sender: FDA-Public Use
  Company Number: None

PATIENT
  Age: 71 Year
  Sex: Male
  Weight: 87.75 kg

DRUGS (6)
  1. LISINOPRIL. [Concomitant]
     Active Substance: LISINOPRIL
  2. BABY ASPIRIN [Concomitant]
     Active Substance: ASPIRIN
  3. IMDUR [Concomitant]
     Active Substance: ISOSORBIDE MONONITRATE
  4. KEYTRUDA [Suspect]
     Active Substance: PEMBROLIZUMAB
     Indication: METASTATIC MALIGNANT MELANOMA
     Dosage: ?          OTHER FREQUENCY:EVERY 3 WEEKS;OTHER ROUTE:INFUSION?
     Dates: start: 20190318
  5. LIPITOR [Concomitant]
     Active Substance: ATORVASTATIN CALCIUM
  6. MELATONIN [Concomitant]
     Active Substance: MELATONIN

REACTIONS (10)
  - Arthralgia [None]
  - Myalgia [None]
  - Hepatic enzyme increased [None]
  - Chromaturia [None]
  - Asthenia [None]
  - Dyspnoea [None]
  - Musculoskeletal stiffness [None]
  - Flushing [None]
  - Visual impairment [None]
  - Fatigue [None]

NARRATIVE: CASE EVENT DATE: 20190405
